FAERS Safety Report 7474437-0 (Version None)
Quarter: 2011Q2

REPORT INFORMATION
  Report Type: 
  Country: None (occurrence: None)
  Receive Date: 20110512
  Receipt Date: 20110211
  Transmission Date: 20111010
  Serious: No
  Sender: FDA-Public Use
  Company Number: US-BAYER-2011-014906

PATIENT
  Age: 38 Year
  Sex: Female

DRUGS (1)
  1. AVELOX [Suspect]
     Indication: RESPIRATORY TRACT INFECTION
     Dosage: 400 MG, QD
     Route: 048
     Dates: start: 20110211, end: 20110211

REACTIONS (4)
  - HYPERSENSITIVITY [None]
  - PARAESTHESIA [None]
  - PARAESTHESIA ORAL [None]
  - LIP SWELLING [None]
